FAERS Safety Report 8088847-4 (Version None)
Quarter: 2012Q1

REPORT INFORMATION
  Report Type: 
  Country: None (occurrence: None)
  Receive Date: 20120128
  Receipt Date: 20110407
  Transmission Date: 20120608
  Serious: No
  Sender: FDA-Public Use
  Company Number: US-ABBOTT-11P-163-0717273-00

PATIENT
  Sex: Female
  Weight: 44.492 kg

DRUGS (3)
  1. PREMPRO [Concomitant]
     Indication: PRODUCT USED FOR UNKNOWN INDICATION
  2. IMURAN [Concomitant]
     Indication: PRODUCT USED FOR UNKNOWN INDICATION
     Dosage: 2.5 TABS
  3. HUMIRA [Suspect]
     Indication: CROHN'S DISEASE
     Route: 058
     Dates: start: 20100831

REACTIONS (4)
  - IMPAIRED HEALING [None]
  - PAIN IN EXTREMITY [None]
  - NASOPHARYNGITIS [None]
  - MUSCULOSKELETAL PAIN [None]
